FAERS Safety Report 4290612-0 (Version None)
Quarter: 2004Q1

REPORT INFORMATION
  Report Type: 
  Country: None (occurrence: None)
  Receive Date: 20040209
  Receipt Date: 20040127
  Transmission Date: 20041129
  Serious: No
  Sender: FDA-Public Use
  Company Number: 04P-163-0248811-00

PATIENT
  Age: 61 Year
  Sex: Female
  Weight: 57.1532 kg

DRUGS (10)
  1. HUMIRA [Suspect]
     Indication: RHEUMATOID ARTHRITIS
     Dosage: 40 MG, SUBCUTANEOUS
     Route: 058
     Dates: start: 20030226, end: 20040112
  2. ISONIAZID [Concomitant]
  3. PYRIDOXINE HYDROCHLORIDE [Concomitant]
  4. METHOTREXATE [Concomitant]
  5. PREDNISONE [Concomitant]
  6. OMEPRAZOLE [Concomitant]
  7. BUCINDOLOL HYDROCHLORIDE [Concomitant]
  8. FOLIC ACID [Concomitant]
  9. TRAMADOL [Concomitant]
  10. ZOLPIDEM TARTRATE [Concomitant]

REACTIONS (4)
  - BLOOD IMMUNOGLOBULIN G INCREASED [None]
  - EYE INFECTION TOXOPLASMAL [None]
  - RETINITIS [None]
  - VISUAL ACUITY REDUCED [None]
